FAERS Safety Report 7134534-6 (Version None)
Quarter: 2010Q4

REPORT INFORMATION
  Report Type: 
  Country: None (occurrence: None)
  Receive Date: 20101203
  Receipt Date: 20101129
  Transmission Date: 20110411
  Serious: Yes (Hospitalization, Other)
  Sender: FDA-Public Use
  Company Number: US-PFIZER INC-2010160610

PATIENT
  Age: 49 Year
  Sex: Male

DRUGS (2)
  1. DOXYCYCLINE HYCLATE [Suspect]
     Indication: COUGH
     Route: 048
  2. DOXYCYCLINE HYCLATE [Suspect]
     Indication: OROPHARYNGEAL PAIN

REACTIONS (1)
  - STEVENS-JOHNSON SYNDROME [None]
